FAERS Safety Report 5636687-5 (Version None)
Quarter: 2008Q1

REPORT INFORMATION
  Report Type: 
  Country: None (occurrence: None)
  Receive Date: 20080220
  Receipt Date: 20080211
  Transmission Date: 20080703
  Serious: Yes (Hospitalization, Other)
  Sender: FDA-Public Use
  Company Number: E2020-02280-SPO-DE

PATIENT
  Age: 84 Year
  Sex: Female

DRUGS (12)
  1. ARICEPT [Suspect]
     Indication: DEMENTIA ALZHEIMER'S TYPE
     Dosage: 5 MG, 1 IN 1 D, ORAL
     Route: 048
     Dates: start: 20071010, end: 20071011
  2. SEROQUEL [Suspect]
     Indication: DELUSIONAL DISORDER, UNSPECIFIED TYPE
     Dosage: 400 MG, ORAL, 200 MG, ORAL
     Route: 048
     Dates: start: 20071004, end: 20071010
  3. SEROQUEL [Suspect]
     Indication: DELUSIONAL DISORDER, UNSPECIFIED TYPE
     Dosage: 400 MG, ORAL, 200 MG, ORAL
     Route: 048
     Dates: start: 20071011, end: 20071011
  4. SEROQUEL [Suspect]
     Indication: DELUSIONAL DISORDER, UNSPECIFIED TYPE
     Dosage: 400 MG, ORAL, 200 MG, ORAL
     Route: 048
     Dates: start: 20071012, end: 20071012
  5. LORAZEPAM [Suspect]
     Dosage: 0.5 MG, ORAL, 1 MG, ORAL
     Route: 048
     Dates: start: 20071010, end: 20071011
  6. LORAZEPAM [Suspect]
     Dosage: 0.5 MG, ORAL, 1 MG, ORAL
     Route: 048
     Dates: start: 20071012, end: 20071012
  7. LORAZEPAM [Suspect]
     Dosage: 0.5 MG, ORAL, 1 MG, ORAL
     Route: 048
     Dates: start: 20071013
  8. DYTHIDE H [Concomitant]
  9. BISOMERCK (BISOPROLOL FUMARATE) [Concomitant]
  10. DEXIUM (CALCIUM DOBESILATE) [Concomitant]
  11. VENOSTASIN (VENOSTASIN FORTE) [Concomitant]
  12. OVESTIN (ESTRIOL) [Concomitant]

REACTIONS (5)
  - DEPRESSED LEVEL OF CONSCIOUSNESS [None]
  - DRUG INTERACTION [None]
  - FALL [None]
  - MUSCULOSKELETAL STIFFNESS [None]
  - PSYCHOTIC DISORDER [None]
